FAERS Safety Report 6504524-2 (Version None)
Quarter: 2009Q4

REPORT INFORMATION
  Report Type: 
  Country: None (occurrence: None)
  Receive Date: 20091215
  Receipt Date: 20091201
  Transmission Date: 20100525
  Serious: Yes (Hospitalization)
  Sender: FDA-Public Use
  Company Number: AMAG200900068

PATIENT
  Age: 76 Year
  Sex: Female
  Weight: 80 kg

DRUGS (7)
  1. FERAHEME [Suspect]
     Indication: IRON DEFICIENCY ANAEMIA
     Dosage: 510 MG, SINGLE, INTRAVENOUS
     Route: 042
     Dates: start: 20091123, end: 20091123
  2. LOPRESSOR [Concomitant]
  3. LISINOPRIL (LISINOPRIL DIHYDRATE) [Concomitant]
  4. CRESTOR [Concomitant]
  5. CALCITRIOL [Concomitant]
  6. RENAGEL [Concomitant]
  7. ASPIRIN [Concomitant]

REACTIONS (5)
  - BLOOD PRESSURE DECREASED [None]
  - CONFUSIONAL STATE [None]
  - FEELING ABNORMAL [None]
  - TRANSIENT ISCHAEMIC ATTACK [None]
  - UNRESPONSIVE TO STIMULI [None]
